FAERS Safety Report 23465744 (Version 1)
Quarter: 2024Q1

REPORT INFORMATION
  Report Type: Spontaneous
  Country: US (occurrence: None)
  Receive Date: 20240131
  Receipt Date: 20240131
  Transmission Date: 20240410
  Serious: Yes (Life-Threatening, Hospitalization)
  Sender: FDA-Public Use
  Company Number: None

PATIENT
  Age: 37 Year
  Sex: Female
  Weight: 87.9 kg

DRUGS (1)
  1. XOFLUZA [Suspect]
     Active Substance: BALOXAVIR MARBOXIL
     Indication: Influenza
     Dosage: FREQUENCY : ONCE;?
     Route: 048
     Dates: start: 20240126, end: 20240126

REACTIONS (14)
  - Syncope [None]
  - Muscle spasms [None]
  - Haemoglobin decreased [None]
  - Platelet count decreased [None]
  - Blood creatinine increased [None]
  - Gallbladder enlargement [None]
  - Murphy^s sign positive [None]
  - Progressive macular hypomelanosis [None]
  - Sepsis [None]
  - Colitis [None]
  - Cholelithiasis [None]
  - Cholecystitis [None]
  - Hypoproteinaemia [None]
  - Hepatitis [None]

NARRATIVE: CASE EVENT DATE: 20240128
